FAERS Safety Report 20686434 (Version 2)
Quarter: 2022Q2

REPORT INFORMATION
  Report Type: Spontaneous
  Country: US (occurrence: US)
  Receive Date: 20220407
  Receipt Date: 20220429
  Transmission Date: 20220721
  Serious: Yes (Death, Other)
  Sender: FDA-Public Use
  Company Number: US-PFIZER INC-202200532468

PATIENT
  Age: 81 Year
  Sex: Male
  Weight: 79.365 kg

DRUGS (23)
  1. VYNDAMAX [Suspect]
     Active Substance: TAFAMIDIS
     Indication: Amyloidosis senile
     Dosage: 61 MG, DAILY
     Route: 048
     Dates: start: 20210414
  2. VYNDAMAX [Suspect]
     Active Substance: TAFAMIDIS
     Dosage: ONCE DAILY
     Route: 048
     Dates: start: 20220223
  3. K-DUR [Concomitant]
     Active Substance: POTASSIUM CHLORIDE
     Dosage: 2 TABLETS BY MOUTH THREE (3) TIMES DAILY
     Route: 048
     Dates: start: 20220310
  4. KLOR-CON M20 [Concomitant]
     Active Substance: POTASSIUM CHLORIDE
     Dosage: TAKE 2 TABLETS BY MOUTH THREE (3) TIMES DAILY
     Route: 048
     Dates: start: 20220310
  5. LASIX [Concomitant]
     Active Substance: FUROSEMIDE
     Dosage: TWO TABLETS IN THE MORNING AND TWO TABLETS IN THE AFTERNOON
     Dates: start: 20220309
  6. ELIQUIS [Concomitant]
     Active Substance: APIXABAN
     Dosage: 5 MG, 2X/DAY(1 TABLET BY MOUTH TWO (2) TIMES A DAY)
     Route: 048
     Dates: start: 20220304
  7. LOPRESSOR [Concomitant]
     Active Substance: METOPROLOL TARTRATE
     Dosage: 50 MG, 2X/DAY [1 TABLET TWICE DAILY]
     Dates: start: 20220223
  8. OMNICEF [Concomitant]
     Active Substance: CEFDINIR
     Dosage: 300 MG, 2X/DAY
     Route: 048
     Dates: start: 20220211
  9. AMOXIL [Concomitant]
     Active Substance: AMOXICILLIN
     Dosage: 500 MG
     Dates: start: 20220112
  10. ZAROXOLYN [Concomitant]
     Active Substance: METOLAZONE
     Dosage: 2.5 MG, AS NEEDED [ TABLET BY MOUTH DAILY AS NEEDED]
     Route: 048
     Dates: start: 20211215
  11. MEGACE [Concomitant]
     Active Substance: MEGESTROL ACETATE
     Dosage: UNK UNK, 2X/DAY
     Dates: start: 20210603
  12. SENOKOT-S [Concomitant]
     Active Substance: DOCUSATE SODIUM\SENNOSIDES
     Dosage: TAKE 1 TABLET BY MOUTH DAILY AS NEEDED
     Route: 048
  13. COLESTID [Concomitant]
     Active Substance: COLESTIPOL HYDROCHLORIDE
     Dosage: 1 MG, 1X/DAY( TAKES ONE TABLET IN THE MORNING ONE HOUR AFTER EATING)
     Route: 048
     Dates: start: 20201216
  14. CETIRIZINE HYDROCHLORIDE [Concomitant]
     Active Substance: CETIRIZINE HYDROCHLORIDE
     Dosage: 10 MG, DAILY
     Route: 048
  15. TYLENOL ARTHRITIS PAIN [Concomitant]
     Active Substance: ACETAMINOPHEN
     Dosage: 650 MG(EVERY EIGHT HOUR PRN)
     Route: 048
  16. OMEPRAZOLE [Concomitant]
     Active Substance: OMEPRAZOLE
     Dosage: 40 MG, DAILY
     Route: 048
  17. FOLVITE [FOLIC ACID] [Concomitant]
     Dosage: 1 MG, DAILY
     Route: 048
  18. PLAQUENIL [Concomitant]
     Active Substance: HYDROXYCHLOROQUINE SULFATE
     Dosage: 200 MG, DAILY
     Route: 048
  19. DURAGESIC [Concomitant]
     Active Substance: FENTANYL
     Dosage: 1 PATCH BY TRANSDERMAL ROUTE EVERY SEVENTY TWO 72 HOURS
     Route: 062
  20. Vitamin D3 PO [Concomitant]
     Dosage: 1000 UNITS, DAILY
     Route: 048
  21. RHEUMATREX [Concomitant]
     Active Substance: METHOTREXATE SODIUM
     Dosage: 20 MG(TAKES 3 TABLETS ON FRIDAY AND 3 TABLETS ON SATURDAY)
     Route: 048
  22. VITAMIN B COMPLEX [Concomitant]
     Active Substance: CYANOCOBALAMIN\DEXPANTHENOL\NIACINAMIDE\PYRIDOXINE HYDROCHLORIDE\RIBOFLAVIN 5^-PHOSPHATE SODIUM\THIA
     Dosage: UNK, DAILY
     Route: 048
  23. ONE A DAY [MINERALS NOS;VITAMINS NOS] [Concomitant]
     Dosage: 1 DF, DAILY
     Route: 048

REACTIONS (1)
  - Death [Fatal]

NARRATIVE: CASE EVENT DATE: 20220406
